FAERS Safety Report 21364700 (Version 1)
Quarter: 2022Q3

REPORT INFORMATION
  Report Type: Spontaneous
  Country: US (occurrence: None)
  Receive Date: 20220922
  Receipt Date: 20220922
  Transmission Date: 20221026
  Serious: Yes (Hospitalization)
  Sender: FDA-Public Use
  Company Number: None

PATIENT
  Sex: Male

DRUGS (1)
  1. PEMAZYRE [Suspect]
     Active Substance: PEMIGATINIB
     Indication: Cholangiocarcinoma
     Dosage: OTHER FREQUENCY : DAILY FOR 14 DAYS;?
     Route: 048
     Dates: start: 20220825

REACTIONS (2)
  - Malaise [None]
  - Feeling abnormal [None]
